FAERS Safety Report 16939491 (Version 4)
Quarter: 2020Q4

REPORT INFORMATION
  Report Type: Report from Study
  Country: DE (occurrence: DE)
  Receive Date: 20191021
  Receipt Date: 20201125
  Transmission Date: 20210113
  Serious: Yes (Death, Life-Threatening, Other)
  Sender: FDA-Public Use
  Company Number: DE-ADIENNEP-2019AD000467

PATIENT
  Age: 58 Year
  Sex: Male

DRUGS (10)
  1. MAGNESIUM [Concomitant]
     Active Substance: MAGNESIUM
     Indication: PROPHYLAXIS
     Dosage: 250 MG, QD (250MG)
     Route: 048
     Dates: start: 20190708, end: 20190922
  2. MELPHALAN. [Suspect]
     Active Substance: MELPHALAN
     Indication: PREMEDICATION
     Dosage: 260 MG, QD (260MG)
     Route: 042
     Dates: start: 20190918, end: 20190918
  3. THIOTEPA. [Suspect]
     Active Substance: THIOTEPA
     Indication: PREMEDICATION
     Dosage: 560 MG, QD (560MG)
     Route: 042
     Dates: start: 20190913, end: 20190913
  4. BISOPROLOL [Concomitant]
     Active Substance: BISOPROLOL
     Indication: PREMEDICATION
     Dosage: 2.5 MG, BID (2.5MG)
     Route: 048
     Dates: end: 20191001
  5. VALSARTAN. [Concomitant]
     Active Substance: VALSARTAN
     Indication: PREMEDICATION
     Dosage: 160 MG, BID (160MG)
     Route: 048
     Dates: end: 20191001
  6. PLERIXAFOR [Suspect]
     Active Substance: PLERIXAFOR
     Indication: NON-HODGKIN^S LYMPHOMA
     Dosage: UNK UNK, QD () ()
     Route: 058
     Dates: start: 20190722, end: 20190723
  7. CYTARABINE. [Suspect]
     Active Substance: CYTARABINE
     Indication: PREMEDICATION
     Dosage: 760 MG, QD (760MG)
     Route: 042
     Dates: start: 20190914, end: 20190917
  8. ATORVASTATIN CALCIUM. [Concomitant]
     Active Substance: ATORVASTATIN CALCIUM
     Indication: PREMEDICATION
     Dosage: 21.65 MG, QD (21.65MG)
     Route: 048
     Dates: end: 20191001
  9. AMOXICILLIN. [Concomitant]
     Active Substance: AMOXICILLIN
     Dosage: 500 MG, TID (500MG)
     Route: 048
  10. ETOPOSIDE. [Suspect]
     Active Substance: ETOPOSIDE
     Indication: PREMEDICATION
     Dosage: 280 MG, QD (280MG)
     Route: 042
     Dates: start: 20190914, end: 20190917

REACTIONS (3)
  - Multiple organ dysfunction syndrome [Fatal]
  - Cytomegalovirus infection reactivation [Unknown]
  - Neutropenic sepsis [Not Recovered/Not Resolved]

NARRATIVE: CASE EVENT DATE: 20190920
